FAERS Safety Report 6940765-8 (Version None)
Quarter: 2010Q3

REPORT INFORMATION
  Report Type: 
  Country: None (occurrence: None)
  Receive Date: 20100824
  Receipt Date: 20100824
  Transmission Date: 20110219
  Serious: Yes (Hospitalization)
  Sender: FDA-Public Use
  Company Number: None

PATIENT
  Age: 75 Year
  Sex: Male
  Weight: 94.6 kg

DRUGS (1)
  1. ACTOS [Suspect]
     Dosage: 45 MG DAILY PO
     Route: 048

REACTIONS (1)
  - CARDIAC FAILURE CONGESTIVE [None]
